FAERS Safety Report 15374913 (Version 3)
Quarter: 2020Q2

REPORT INFORMATION
  Report Type: Spontaneous
  Country: US (occurrence: US)
  Receive Date: 20180912
  Receipt Date: 20200422
  Transmission Date: 20200713
  Serious: Yes (Other)
  Sender: FDA-Public Use
  Company Number: US-009507513-1808USA006694

PATIENT
  Age: 28 Year
  Sex: Female

DRUGS (2)
  1. JANUVIA [Suspect]
     Active Substance: SITAGLIPTIN PHOSPHATE
     Indication: INSULIN RESISTANCE
  2. JANUVIA [Suspect]
     Active Substance: SITAGLIPTIN PHOSPHATE
     Indication: POLYCYSTIC OVARIES
     Dosage: 1 TABLET,
     Route: 048
     Dates: start: 201708

REACTIONS (3)
  - Maternal exposure during pregnancy [Unknown]
  - Foetal death [Unknown]
  - Product use in unapproved indication [Unknown]

NARRATIVE: CASE EVENT DATE: 201708
